FAERS Safety Report 9237336 (Version 2)
Quarter: 2013Q2

REPORT INFORMATION
  Report Type: Report from Study
  Country: US (occurrence: US)
  Receive Date: 20130417
  Receipt Date: 20130605
  Transmission Date: 20140414
  Serious: Yes (Other)
  Sender: FDA-Public Use
  Company Number: US-ABBOTT-13P-163-1074605-00

PATIENT
  Age: 58 Year
  Sex: Female
  Weight: 64.92 kg

DRUGS (18)
  1. HUMIRA [Suspect]
     Indication: PSORIATIC ARTHROPATHY
     Dosage: DURATION: YEARS
     Dates: start: 20070329
  2. VITAMIN D [Concomitant]
     Indication: PRODUCT USED FOR UNKNOWN INDICATION
     Dosage: WEEKLY
  3. NASONEX [Concomitant]
     Indication: HYPERSENSITIVITY
  4. ALAVERT D [Concomitant]
     Indication: HYPERSENSITIVITY
  5. LIDODERM [Concomitant]
     Indication: ARTHRALGIA
     Dosage: PATCHES 5%, AS NEEDED
  6. CITRACAL WITH VITAMIN D AND MAGNESIUM [Concomitant]
     Indication: PRODUCT USED FOR UNKNOWN INDICATION
     Dosage: ONE DAILY
  7. ATENOLOL [Concomitant]
     Indication: HEART RATE
  8. HYDROXYZINE [Concomitant]
     Indication: PRURITUS
  9. HYDROXYZINE [Concomitant]
     Indication: ANXIOLYTIC THERAPY
  10. CELEBREX [Concomitant]
     Indication: OSTEOARTHRITIS
  11. SIMVASTATIN [Concomitant]
     Indication: BLOOD CHOLESTEROL INCREASED
     Dosage: AT BEDTIME
  12. HYDROCODONE [Concomitant]
     Indication: PAIN
     Dosage: 1 TABLET, EVERY 4 TO 6 HOURS
  13. FLEXERIL [Concomitant]
     Indication: MUSCLE RELAXANT THERAPY
  14. OPANA [Concomitant]
     Indication: PRODUCT USED FOR UNKNOWN INDICATION
     Dosage: 1 TABLET, TWICE DAILY
  15. PROMETHAZINE HCL [Concomitant]
     Indication: NAUSEA
  16. PROMETHAZINE HCL [Concomitant]
     Indication: VOMITING
  17. OMEPRAZOLE [Concomitant]
     Indication: GASTROOESOPHAGEAL REFLUX DISEASE
     Dosage: 2 TABLETS DAILY
  18. HYDROCORTISONE CREAM [Concomitant]
     Indication: DRY SKIN

REACTIONS (5)
  - Neuralgia [Unknown]
  - Diabetes mellitus [Unknown]
  - Injection site pain [Unknown]
  - Depression [Unknown]
  - Hypertension [Unknown]
